FAERS Safety Report 6616447-9 (Version None)
Quarter: 2010Q1

REPORT INFORMATION
  Report Type: 
  Country: None (occurrence: None)
  Receive Date: 20100305
  Receipt Date: 20100303
  Transmission Date: 20100710
  Serious: Yes (Death, Hospitalization)
  Sender: FDA-Public Use
  Company Number: PHEH2010US02671

PATIENT
  Sex: Male
  Weight: 107.4 kg

DRUGS (2)
  1. GLEEVEC [Suspect]
     Indication: ACUTE LEUKAEMIA
     Dosage: 400 MG, BID
     Route: 048
     Dates: start: 20090610, end: 20100107
  2. DASATINIB [Concomitant]
     Indication: ACUTE LYMPHOCYTIC LEUKAEMIA
     Dosage: UNK, UNK
     Dates: start: 20100107

REACTIONS (17)
  - ACUTE LYMPHOCYTIC LEUKAEMIA RECURRENT [None]
  - BACTERIAL SEPSIS [None]
  - CACHEXIA [None]
  - FEBRILE NEUTROPENIA [None]
  - HAEMORRHAGE [None]
  - HYPOTENSION [None]
  - MALAISE [None]
  - MOBILITY DECREASED [None]
  - NAUSEA [None]
  - NEUROPATHY PERIPHERAL [None]
  - OEDEMA PERIPHERAL [None]
  - RENAL FAILURE ACUTE [None]
  - RESPIRATORY FAILURE [None]
  - SEPTIC SHOCK [None]
  - SHOCK [None]
  - TUMOUR LYSIS SYNDROME [None]
  - VISUAL ACUITY REDUCED [None]
